FAERS Safety Report 11827614 (Version 1)
Quarter: 2015Q4

REPORT INFORMATION
  Report Type: Spontaneous
  Country: US (occurrence: US)
  Receive Date: 20151211
  Receipt Date: 20151211
  Transmission Date: 20160305
  Serious: No
  Sender: FDA-Public Use
  Company Number: US-WATSON-2015-17587

PATIENT
  Sex: Female
  Weight: 94.33 kg

DRUGS (1)
  1. LILETTA [Suspect]
     Active Substance: LEVONORGESTREL
     Indication: CONTRACEPTION
     Dosage: UNK, UNKNOWN
     Route: 015
     Dates: start: 20150708, end: 201508

REACTIONS (1)
  - Device expulsion [Unknown]
